FAERS Safety Report 5416430-5 (Version None)
Quarter: 2007Q3

REPORT INFORMATION
  Report Type: 
  Country: None (occurrence: None)
  Receive Date: 20070816
  Receipt Date: 20070808
  Transmission Date: 20080115
  Serious: Yes (Other)
  Sender: FDA-Public Use
  Company Number: US-JNJFOC-20070802333

PATIENT
  Sex: Female
  Weight: 65.77 kg

DRUGS (3)
  1. DURAGESIC-100 [Suspect]
     Indication: PAIN
     Route: 062
  2. BUSPIRONE [Suspect]
     Indication: DEPRESSION
     Route: 048
  3. IBUPROFEN [Concomitant]
     Indication: JOINT SWELLING
     Route: 048

REACTIONS (9)
  - ARTHROPATHY [None]
  - CONFUSIONAL STATE [None]
  - DAYDREAMING [None]
  - DECREASED ACTIVITY [None]
  - DEPRESSION [None]
  - FALL [None]
  - FATIGUE [None]
  - MULTIPLE SCLEROSIS [None]
  - THERAPEUTIC RESPONSE DECREASED [None]
